FAERS Safety Report 4330637-X (Version None)
Quarter: 2004Q2

REPORT INFORMATION
  Report Type: 
  Country: None (occurrence: None)
  Receive Date: 20040402
  Receipt Date: 20030623
  Transmission Date: 20050107
  Serious: Yes (Other)
  Sender: FDA-Public Use
  Company Number: US-GLAXOSMITHKLINE-A0413960A

PATIENT
  Sex: Female

DRUGS (9)
  1. AVANDIA [Suspect]
     Indication: DIABETES MELLITUS INSULIN-DEPENDENT
     Dosage: 4MG PER DAY
     Route: 048
     Dates: start: 20010516, end: 20021001
  2. GLIPIZIDE [Concomitant]
     Indication: DIABETES MELLITUS INSULIN-DEPENDENT
     Dosage: 10MG PER DAY
  3. LOTENSIN [Concomitant]
     Indication: HYPERTENSION
     Dosage: 10MG PER DAY
  4. GLUCOPHAGE [Concomitant]
     Indication: DIABETES MELLITUS INSULIN-DEPENDENT
  5. FOLIC ACID [Concomitant]
  6. ALTACE [Concomitant]
  7. ZYRTEC [Concomitant]
  8. PHENERGAN EXPECTORANT W/ CODEINE [Concomitant]
  9. COZAAR [Concomitant]

REACTIONS (10)
  - ASTHMA [None]
  - CHOLELITHIASIS [None]
  - FLUID OVERLOAD [None]
  - FLUID RETENTION [None]
  - HEART INJURY [None]
  - HEPATIC CIRRHOSIS [None]
  - HEPATIC FAILURE [None]
  - HEPATITIS [None]
  - HEPATOCELLULAR DAMAGE [None]
  - SPLENOMEGALY [None]
